FAERS Safety Report 18290618 (Version 2)
Quarter: 2020Q4

REPORT INFORMATION
  Report Type: Spontaneous
  Country: US (occurrence: US)
  Receive Date: 20200921
  Receipt Date: 20201012
  Transmission Date: 20210113
  Serious: Yes (Hospitalization, Other)
  Sender: FDA-Public Use
  Company Number: US-BEXIMCO-2020BEX00122

PATIENT
  Age: 76 Year
  Sex: Female
  Weight: 72.56 kg

DRUGS (15)
  1. METFORMIN HYDROCHLORIDE. [Suspect]
     Active Substance: METFORMIN HYDROCHLORIDE
     Indication: DIABETES MELLITUS
     Dosage: 750 MG, 1X/DAY AT DINNER TIME
     Route: 048
     Dates: end: 202009
  2. OMEPRAZOLE. [Concomitant]
     Active Substance: OMEPRAZOLE
  3. MULTIVITAMIN [Concomitant]
     Active Substance: VITAMINS
  4. NITROFURANTOIN. [Concomitant]
     Active Substance: NITROFURANTOIN
     Dosage: 50 MG, 1X/DAY
  5. METFORMIN HYDROCHLORIDE. [Suspect]
     Active Substance: METFORMIN HYDROCHLORIDE
     Indication: DIABETES MELLITUS
     Dosage: 500 MG, 1X/DAY AT DINNER TIME
     Route: 048
  6. ASPIRIN. [Concomitant]
     Active Substance: ASPIRIN
     Dosage: 81 MG, 1X/DAY
  7. CULTURELLE [Concomitant]
     Active Substance: LACTOBACILLUS RHAMNOSUS
  8. XANAX [Concomitant]
     Active Substance: ALPRAZOLAM
     Dosage: 3-4X/DAY
  9. CHEMO [Suspect]
     Active Substance: UNSPECIFIED INGREDIENT
  10. METFORMIN HYDROCHLORIDE NOT EXTENDED RELEASE (NON-COMPANY PRODUCT) [Suspect]
     Active Substance: METFORMIN HYDROCHLORIDE
     Indication: DIABETES MELLITUS
     Dosage: 1000 MG, 1X/DAY (2 PILLS A DAY)
     Dates: start: 20200902
  11. HYDROCHLOROTHIAZIDE. [Concomitant]
     Active Substance: HYDROCHLOROTHIAZIDE
  12. FLAX SEED OIL PILL [Concomitant]
  13. FISH OIL [Concomitant]
     Active Substance: FISH OIL
  14. LISINOPRIL. [Concomitant]
     Active Substance: LISINOPRIL
     Indication: BLOOD PRESSURE ABNORMAL
  15. D-MANNOSE [Concomitant]

REACTIONS (18)
  - Blood urine present [Unknown]
  - Bladder hypertrophy [Recovered/Resolved]
  - Cystocele [Unknown]
  - Skin operation [Not Recovered/Not Resolved]
  - Blood glucose increased [Recovered/Resolved]
  - Pain [Not Recovered/Not Resolved]
  - Malignant melanoma [Recovered/Resolved]
  - Arthritis [Not Recovered/Not Resolved]
  - Fibromyalgia [Not Recovered/Not Resolved]
  - Cystitis [Recovering/Resolving]
  - Kidney infection [Recovered/Resolved]
  - Tremor [Not Recovered/Not Resolved]
  - Urinary retention [Recovered/Resolved]
  - Bacterial infection [Recovering/Resolving]
  - Bladder disorder [Unknown]
  - Blood glucose fluctuation [Recovered/Resolved]
  - Breast cancer recurrent [Recovered/Resolved]
  - Hysterectomy [Recovered/Resolved]

NARRATIVE: CASE EVENT DATE: 2020
